FAERS Safety Report 21478291 (Version 3)
Quarter: 2023Q1

REPORT INFORMATION
  Report Type: Spontaneous
  Country: US (occurrence: US)
  Receive Date: 20221019
  Receipt Date: 20230228
  Transmission Date: 20230418
  Serious: No
  Sender: FDA-Public Use
  Company Number: US-LUPIN PHARMACEUTICALS INC.-2022-12133

PATIENT

DRUGS (3)
  1. LISINOPRIL [Suspect]
     Active Substance: LISINOPRIL
     Indication: Blood cholesterol abnormal
     Dosage: UNK, 10 YEARS AGO
     Route: 065
  2. LISINOPRIL [Suspect]
     Active Substance: LISINOPRIL
     Dosage: UNK
     Route: 065
  3. ATORVASTATIN [Concomitant]
     Active Substance: ATORVASTATIN
     Indication: Product used for unknown indication
     Dosage: UNK, QD,  (EVERY EVENING)
     Route: 065

REACTIONS (3)
  - Recalled product administered [Unknown]
  - Product use in unapproved indication [Unknown]
  - No adverse event [Unknown]
